FAERS Safety Report 22521709 (Version 1)
Quarter: 2023Q2

REPORT INFORMATION
  Report Type: Spontaneous
  Country: US (occurrence: US)
  Receive Date: 20230605
  Receipt Date: 20230605
  Transmission Date: 20230722
  Serious: No
  Sender: FDA-Public Use
  Company Number: US-AVEO ONCOLOGY-2023-AVEO-US000182

PATIENT

DRUGS (13)
  1. FOTIVDA [Suspect]
     Active Substance: TIVOZANIB HYDROCHLORIDE
     Indication: Renal cell carcinoma
     Dosage: 1.34 MG, DAILY FOR 21 DAYS WITH 7 DAYS OFF (28-DAY CYCLE)
     Route: 048
     Dates: start: 20230304
  2. BENADRYL [Concomitant]
     Active Substance: DIPHENHYDRAMINE HYDROCHLORIDE
  3. CORTEF [Concomitant]
     Active Substance: HYDROCORTISONE
  4. FLONASE [Concomitant]
     Active Substance: FLUTICASONE PROPIONATE
  5. MICARDIS [Concomitant]
     Active Substance: TELMISARTAN
  6. MUPIROCIN [Concomitant]
     Active Substance: MUPIROCIN
  7. NEUPRO [Concomitant]
     Active Substance: ROTIGOTINE
     Route: 062
  8. PREDNISONE [Concomitant]
     Active Substance: PREDNISONE
  9. Tab-A-Vite [Concomitant]
  10. TIROSINT [Concomitant]
     Active Substance: LEVOTHYROXINE SODIUM
  11. TRIAMCINOLONE [Concomitant]
     Active Substance: TRIAMCINOLONE
  12. VITAMIN B12 [Concomitant]
     Active Substance: CYANOCOBALAMIN
  13. VITAMIN D [Concomitant]
     Active Substance: VITAMIN D NOS

REACTIONS (3)
  - Dysphonia [Not Recovered/Not Resolved]
  - Palmar-plantar erythrodysaesthesia syndrome [Not Recovered/Not Resolved]
  - Stomatitis [Unknown]

NARRATIVE: CASE EVENT DATE: 20230101
